FAERS Safety Report 21458639 (Version 2)
Quarter: 2022Q4

REPORT INFORMATION
  Report Type: Spontaneous
  Country: US (occurrence: US)
  Receive Date: 20221014
  Receipt Date: 20221018
  Transmission Date: 20230112
  Serious: No
  Sender: FDA-Public Use
  Company Number: US-PFIZER INC-2021640881

PATIENT
  Age: 61 Year
  Sex: Female

DRUGS (1)
  1. XELJANZ XR [Suspect]
     Active Substance: TOFACITINIB CITRATE
     Indication: Oligoarthritis
     Dosage: 11 MG, 1X/DAY
     Route: 048
     Dates: start: 2018

REACTIONS (7)
  - Wrong technique in product usage process [Unknown]
  - COVID-19 [Unknown]
  - Musculoskeletal stiffness [Recovered/Resolved]
  - Swelling [Unknown]
  - Arthralgia [Recovering/Resolving]
  - Arthropathy [Unknown]
  - Off label use [Unknown]
